FAERS Safety Report 8906359 (Version 1)
Quarter: 2012Q4

REPORT INFORMATION
  Report Type: Spontaneous
  Country: US (occurrence: None)
  Receive Date: 20121109
  Receipt Date: 20121109
  Transmission Date: 20130627
  Serious: Yes (Other)
  Sender: FDA-Public Use
  Company Number: None

PATIENT
  Age: 35 Year
  Sex: Female
  Weight: 63.5 kg

DRUGS (1)
  1. PROVENTIL HFA [Suspect]
     Indication: ASTHMA
     Route: 055
     Dates: start: 20120715, end: 20121104

REACTIONS (5)
  - Malaise [None]
  - Haemoptysis [None]
  - Pain [None]
  - Respiratory tract infection [None]
  - Product quality issue [None]
